FAERS Safety Report 18817554 (Version 13)
Quarter: 2023Q1

REPORT INFORMATION
  Report Type: Report from Study
  Country: CA (occurrence: CA)
  Receive Date: 20210201
  Receipt Date: 20230329
  Transmission Date: 20230417
  Serious: Yes (Other)
  Sender: FDA-Public Use
  Company Number: CA-TAKEDA-2018TUS019919

PATIENT
  Age: 22 Year
  Sex: Male

DRUGS (19)
  1. VEDOLIZUMAB [Suspect]
     Active Substance: VEDOLIZUMAB
     Indication: Crohn^s disease
     Dosage: 300 MILLIGRAM
     Route: 042
     Dates: start: 20161013
  2. VEDOLIZUMAB [Suspect]
     Active Substance: VEDOLIZUMAB
     Dosage: 300 MILLIGRAM, Q4WEEKS
     Route: 042
     Dates: start: 20170413
  3. VEDOLIZUMAB [Suspect]
     Active Substance: VEDOLIZUMAB
     Dosage: 600 MILLIGRAM
     Route: 042
     Dates: start: 20170706
  4. VEDOLIZUMAB [Suspect]
     Active Substance: VEDOLIZUMAB
     Dosage: 600 MILLIGRAM
     Route: 042
  5. VEDOLIZUMAB [Suspect]
     Active Substance: VEDOLIZUMAB
     Dosage: 300 MILLIGRAM, Q4WEEKS
     Route: 042
     Dates: start: 20190530
  6. VEDOLIZUMAB [Suspect]
     Active Substance: VEDOLIZUMAB
     Dosage: 300 MILLIGRAM, Q4WEEKS
     Route: 042
  7. VEDOLIZUMAB [Suspect]
     Active Substance: VEDOLIZUMAB
     Dosage: 300 MILLIGRAM, Q4WEEKS
     Route: 042
  8. VEDOLIZUMAB [Suspect]
     Active Substance: VEDOLIZUMAB
     Dosage: 300 MILLIGRAM, Q4WEEKS
     Route: 042
  9. VEDOLIZUMAB [Suspect]
     Active Substance: VEDOLIZUMAB
     Dosage: 300 MILLIGRAM, Q4WEEKS
     Route: 042
  10. VEDOLIZUMAB [Suspect]
     Active Substance: VEDOLIZUMAB
     Dosage: 300 MILLIGRAM, Q4WEEKS
     Route: 042
  11. VEDOLIZUMAB [Suspect]
     Active Substance: VEDOLIZUMAB
     Dosage: 300 MILLIGRAM, Q4WEEKS
     Route: 042
  12. VEDOLIZUMAB [Suspect]
     Active Substance: VEDOLIZUMAB
     Dosage: 300 MILLIGRAM, Q4WEEKS
     Route: 042
  13. VEDOLIZUMAB [Suspect]
     Active Substance: VEDOLIZUMAB
     Dosage: 300 MILLIGRAM, Q4WEEKS
     Route: 042
  14. VEDOLIZUMAB [Suspect]
     Active Substance: VEDOLIZUMAB
     Indication: Crohn^s disease
     Dosage: UNK UNK, Q2WEEKS
     Route: 058
     Dates: start: 20220524
  15. VEDOLIZUMAB [Suspect]
     Active Substance: VEDOLIZUMAB
     Dosage: UNK UNK, Q2WEEKS
     Route: 058
  16. VEDOLIZUMAB [Suspect]
     Active Substance: VEDOLIZUMAB
     Dosage: UNK UNK, Q2WEEKS
     Route: 058
  17. CALCIUM [Concomitant]
     Active Substance: CALCIUM
     Dosage: UNK
  18. PENTASA [Concomitant]
     Active Substance: MESALAMINE
     Dosage: UNK
  19. VENLAFAXINE [Concomitant]
     Active Substance: VENLAFAXINE HYDROCHLORIDE
     Dosage: 37.5 MILLIGRAM

REACTIONS (27)
  - Crohn^s disease [Not Recovered/Not Resolved]
  - Haematochezia [Unknown]
  - Haemorrhage [Unknown]
  - Product administration error [Unknown]
  - Product leakage [Unknown]
  - Gastrooesophageal reflux disease [Unknown]
  - Asthenia [Unknown]
  - Food intolerance [Unknown]
  - Secretion discharge [Not Recovered/Not Resolved]
  - Gastrointestinal disorder [Unknown]
  - Myalgia [Unknown]
  - Abdominal pain upper [Unknown]
  - Illness [Unknown]
  - Diarrhoea [Unknown]
  - Product dose omission issue [Unknown]
  - Drug ineffective [Unknown]
  - Off label use [Unknown]
  - Abdominal pain [Unknown]
  - Ear infection [Unknown]
  - Rhinorrhoea [Not Recovered/Not Resolved]
  - Abdominal distension [Unknown]
  - Herpes zoster [Not Recovered/Not Resolved]
  - Nasopharyngitis [Not Recovered/Not Resolved]
  - Headache [Unknown]
  - Fatigue [Unknown]
  - Influenza [Not Recovered/Not Resolved]
  - Cough [Not Recovered/Not Resolved]

NARRATIVE: CASE EVENT DATE: 20170413
